FAERS Safety Report 17756773 (Version 8)
Quarter: 2022Q3

REPORT INFORMATION
  Report Type: Spontaneous
  Country: US (occurrence: US)
  Receive Date: 20200507
  Receipt Date: 20220727
  Transmission Date: 20221027
  Serious: Yes (Other)
  Sender: FDA-Public Use
  Company Number: US-PFIZER INC-2020182919

PATIENT
  Age: 63 Year
  Sex: Male

DRUGS (6)
  1. XELJANZ [Suspect]
     Active Substance: TOFACITINIB CITRATE
     Indication: Colitis ulcerative
     Dosage: 10 MG, 2X/DAY
     Route: 048
     Dates: start: 20200403
  2. XELJANZ [Suspect]
     Active Substance: TOFACITINIB CITRATE
     Indication: Rectal haemorrhage
     Dosage: 5 MG, 2X/DAY
     Route: 048
     Dates: start: 202006
  3. XELJANZ [Suspect]
     Active Substance: TOFACITINIB CITRATE
     Dosage: 10 MG, 2X/DAY
     Route: 048
     Dates: start: 202009
  4. PREDNISONE [Concomitant]
     Active Substance: PREDNISONE
     Dosage: WEANING OFF, LAST DOSE THIS FRIDAY
  5. PREDNISONE [Concomitant]
     Active Substance: PREDNISONE
     Dosage: 10 MG (PREDNISONE 10MG STARTED ABOUT 6-7 WEEKS AGO)
  6. MESALAMINE [Concomitant]
     Active Substance: MESALAMINE
     Dosage: UNK, DAILY

REACTIONS (8)
  - Vitreous detachment [Unknown]
  - Drug ineffective [Unknown]
  - Product dose omission issue [Unknown]
  - Malaise [Recovering/Resolving]
  - Depression [Recovering/Resolving]
  - Sleep disorder [Unknown]
  - Stress [Unknown]
  - Colitis [Unknown]

NARRATIVE: CASE EVENT DATE: 20200101
